FAERS Safety Report 7650856-4 (Version None)
Quarter: 2011Q3

REPORT INFORMATION
  Report Type: 
  Country: None (occurrence: None)
  Receive Date: 20110802
  Receipt Date: 20110729
  Transmission Date: 20111222
  Serious: Yes (Hospitalization)
  Sender: FDA-Public Use
  Company Number: US-BRISTOL-MYERS SQUIBB COMPANY-15935711

PATIENT
  Age: 20 Year
  Sex: Male

DRUGS (1)
  1. COUMADIN [Suspect]
     Dosage: 1DF=20 TABLETS

REACTIONS (2)
  - SUICIDE ATTEMPT [None]
  - OVERDOSE [None]
